FAERS Safety Report 21046380 (Version 1)
Quarter: 2022Q3

REPORT INFORMATION
  Report Type: Report from Study
  Country: US (occurrence: US)
  Receive Date: 20220706
  Receipt Date: 20220706
  Transmission Date: 20221026
  Serious: Yes (Other)
  Sender: FDA-Public Use
  Company Number: US-KOREA IPSEN Pharma-2022-18716

PATIENT
  Age: 74 Year
  Sex: Male

DRUGS (1)
  1. SOMATULINE DEPOT [Suspect]
     Active Substance: LANREOTIDE ACETATE
     Indication: Carcinoid tumour of the small bowel
     Dosage: 120MG/0.5 ML
     Route: 058
     Dates: start: 201810

REACTIONS (3)
  - Hernia [Recovering/Resolving]
  - Disease progression [Recovering/Resolving]
  - Laboratory test abnormal [Unknown]
